FAERS Safety Report 14920942 (Version 1)
Quarter: 2018Q2

REPORT INFORMATION
  Report Type: Spontaneous
  Country: US (occurrence: US)
  Receive Date: 20180521
  Receipt Date: 20180521
  Transmission Date: 20180711
  Serious: No
  Sender: FDA-Public Use
  Company Number: US-GLAXOSMITHKLINE-US2018GSK089867

PATIENT

DRUGS (2)
  1. BUPROPION SR PROLONGED-RELEASE TABLET [Suspect]
     Active Substance: BUPROPION
  2. WELLBUTRIN SR [Concomitant]
     Active Substance: BUPROPION HYDROCHLORIDE
     Dosage: 150 DF, UNK

REACTIONS (3)
  - Product substitution issue [Unknown]
  - Ill-defined disorder [Unknown]
  - Therapeutic response changed [Unknown]
